FAERS Safety Report 7904826-9 (Version None)
Quarter: 2011Q4

REPORT INFORMATION
  Report Type: 
  Country: None (occurrence: None)
  Receive Date: 20111109
  Receipt Date: 20111027
  Transmission Date: 20120403
  Serious: Yes (Hospitalization)
  Sender: FDA-Public Use
  Company Number: PHHY2011DE39394

PATIENT
  Sex: Female
  Weight: 50 kg

DRUGS (1)
  1. SANDOSTATIN LAR [Suspect]
     Indication: PANCREATIC NEUROENDOCRINE TUMOUR
     Dosage: 30 MG ONCE MONTHLY
     Route: 030
     Dates: start: 20110209

REACTIONS (3)
  - SPINAL FRACTURE [None]
  - HAEMOGLOBIN DECREASED [None]
  - GENERAL PHYSICAL HEALTH DETERIORATION [None]
